FAERS Safety Report 10410804 (Version 2)
Quarter: 2014Q3

REPORT INFORMATION
  Report Type: Spontaneous
  Country: US (occurrence: US)
  Receive Date: 20140826
  Receipt Date: 20140826
  Transmission Date: 20150326
  Serious: No
  Sender: FDA-Public Use
  Company Number: US-BRISTOL-MYERS SQUIBB COMPANY-19184175

PATIENT
  Age: 48 Year
  Sex: Female
  Weight: 58.05 kg

DRUGS (3)
  1. NORETHINDRONE + ETHINYLESTRADIOL [Concomitant]
  2. OMEPRAZOLE. [Concomitant]
     Active Substance: OMEPRAZOLE
  3. KENALOG-10 [Suspect]
     Active Substance: TRIAMCINOLONE ACETONIDE
     Indication: SCAR
     Dosage: ROA:SC
     Route: 026
     Dates: start: 20130705, end: 20130705

REACTIONS (1)
  - Scar [Unknown]
